FAERS Safety Report 8042178-7 (Version None)
Quarter: 2011Q4

REPORT INFORMATION
  Report Type: 
  Country: None (occurrence: None)
  Receive Date: 20111202
  Receipt Date: 20101115
  Transmission Date: 20120403
  Serious: Yes (Hospitalization)
  Sender: FDA-Public Use
  Company Number: 2010SP059989

PATIENT
  Age: 25 Year
  Sex: Female
  Weight: 67.586 kg

DRUGS (2)
  1. MOTRIN [Concomitant]
  2. NUVARING [Suspect]
     Indication: OVARIAN CYST
     Dates: start: 20081103, end: 20081222

REACTIONS (3)
  - VULVOVAGINAL PRURITUS [None]
  - DEEP VEIN THROMBOSIS [None]
  - PAIN IN EXTREMITY [None]
